FAERS Safety Report 22248049 (Version 4)
Quarter: 2023Q2

REPORT INFORMATION
  Report Type: Spontaneous
  Country: DE (occurrence: DE)
  Receive Date: 20230425
  Receipt Date: 20230626
  Transmission Date: 20230722
  Serious: Yes (Hospitalization)
  Sender: FDA-Public Use
  Company Number: DE-AMGEN-DEUSP2023068637

PATIENT
  Age: 35 Year
  Sex: Male

DRUGS (1)
  1. ADALIMUMAB [Suspect]
     Active Substance: ADALIMUMAB
     Indication: Crohn^s disease
     Dosage: 40 MILLIGRAM, Q2WK
     Route: 065
     Dates: start: 20220215, end: 202303

REACTIONS (1)
  - Dilated cardiomyopathy [Recovering/Resolving]

NARRATIVE: CASE EVENT DATE: 20230301
